FAERS Safety Report 11039952 (Version 1)
Quarter: 2015Q2

REPORT INFORMATION
  Report Type: Report from Study
  Country: CA (occurrence: CA)
  Receive Date: 20150416
  Receipt Date: 20150416
  Transmission Date: 20150821
  Serious: Yes (Other)
  Sender: FDA-Public Use
  Company Number: CA-INCYTE CORPORATION-2013IN001155

PATIENT
  Age: 75 Year
  Sex: Male

DRUGS (1)
  1. JAKAFI [Suspect]
     Active Substance: RUXOLITINIB
     Indication: MYELOFIBROSIS
     Dosage: 10 MG, BID
     Route: 048
     Dates: start: 20130301

REACTIONS (9)
  - Abdominal pain lower [Recovered/Resolved]
  - Rash pruritic [Unknown]
  - Skin cancer [Unknown]
  - Malaise [Unknown]
  - Platelet count decreased [Unknown]
  - Contusion [Unknown]
  - Second primary malignancy [Unknown]
  - Rash [Unknown]
  - Pigmentation disorder [Unknown]

NARRATIVE: CASE EVENT DATE: 201303
